FAERS Safety Report 9691558 (Version 1)
Quarter: 2013Q4

REPORT INFORMATION
  Report Type: Spontaneous
  Country: GB (occurrence: GB)
  Receive Date: 20131115
  Receipt Date: 20131115
  Transmission Date: 20140711
  Serious: Yes (Other)
  Sender: FDA-Public Use
  Company Number: PHHY2013GB129484

PATIENT
  Age: 52 Year
  Sex: Female

DRUGS (12)
  1. OMEPRAZOLE [Suspect]
     Indication: ABDOMINAL DISCOMFORT
     Dosage: 1 DF, QD
     Route: 048
     Dates: start: 20131028, end: 20131031
  2. DIAZEPAM [Concomitant]
     Dosage: 2 DF, TID (5 MG TABLETS)
  3. MORPHINE [Concomitant]
     Indication: PAIN
     Dosage: 3 DF, BID (40 MG TABLETS)
  4. AMITRIPTYLINE [Concomitant]
     Dosage: 1 DF, BID (25 MG TABLETS)
  5. HYDROXYCHLOROQUINE [Concomitant]
     Dosage: 200 MG, BID
  6. OXYCODONE [Concomitant]
     Dosage: 80 MG, BID
  7. TEMAZEPAM [Concomitant]
     Dosage: 20 MG, BID
  8. ERGOCALCIFEROL [Concomitant]
     Dosage: UNK
  9. PARACETAMOL [Concomitant]
     Indication: PRODUCT USED FOR UNKNOWN INDICATION
     Dosage: 500 MG
  10. FUROSEMIDE [Concomitant]
     Indication: PRODUCT USED FOR UNKNOWN INDICATION
  11. DICLOFENAC [Concomitant]
     Dosage: UNK
  12. MORPHINE [Concomitant]
     Dosage: 50 MG 2 PER HOUR

REACTIONS (11)
  - Syncope [Not Recovered/Not Resolved]
  - Lethargy [Not Recovered/Not Resolved]
  - Convulsion [Not Recovered/Not Resolved]
  - Tremor [Not Recovered/Not Resolved]
  - Abnormal sleep-related event [Not Recovered/Not Resolved]
  - Amnesia [Not Recovered/Not Resolved]
  - Sleep talking [Not Recovered/Not Resolved]
  - Fatigue [Not Recovered/Not Resolved]
  - Vision blurred [Not Recovered/Not Resolved]
  - Headache [Not Recovered/Not Resolved]
  - Dry mouth [Not Recovered/Not Resolved]
